FAERS Safety Report 19407047 (Version 1)
Quarter: 2021Q2

REPORT INFORMATION
  Report Type: Spontaneous
  Country: ES (occurrence: ES)
  Receive Date: 20210611
  Receipt Date: 20210611
  Transmission Date: 20210717
  Serious: Yes (Hospitalization)
  Sender: FDA-Public Use
  Company Number: ES-MYLANLABS-2021M1033917

PATIENT
  Age: 85 Year
  Sex: Female
  Weight: 61 kg

DRUGS (2)
  1. AZITHROMYCIN ANHYDROUS. [Suspect]
     Active Substance: AZITHROMYCIN ANHYDROUS
     Indication: COVID-19
     Dosage: 500 MILLIGRAM, QD (500MG FIRST DAY, AFTER 250MG)
     Route: 048
     Dates: start: 20200325, end: 20200329
  2. HIDROXICLOROQUINA                  /00072601/ [Interacting]
     Active Substance: HYDROXYCHLOROQUINE
     Indication: COVID-19
     Dosage: 400 MILLIGRAM, Q2D (400MG FIRST DAY AFTER 200MG)
     Route: 048
     Dates: start: 20200325, end: 20200402

REACTIONS (3)
  - Long QT syndrome [Recovered/Resolved]
  - Drug interaction [Unknown]
  - Off label use [Unknown]

NARRATIVE: CASE EVENT DATE: 20200330
